FAERS Safety Report 20223222 (Version 1)
Quarter: 2021Q4

REPORT INFORMATION
  Report Type: Spontaneous
  Country: FR (occurrence: FR)
  Receive Date: 20211223
  Receipt Date: 20211223
  Transmission Date: 20220303
  Serious: Yes (Death)
  Sender: FDA-Public Use
  Company Number: None

PATIENT
  Age: 64 Year
  Sex: Female
  Weight: 98.6 kg

DRUGS (14)
  1. PANTOPRAZOLE [Suspect]
     Active Substance: PANTOPRAZOLE
     Indication: Gastric ulcer
     Dosage: 80 MILLIGRAM, QD
     Route: 048
     Dates: start: 20210829, end: 20210922
  2. OCTREOTIDE [Suspect]
     Active Substance: OCTREOTIDE
     Dosage: 600 MG, 1X/DAY
     Route: 042
     Dates: start: 20210830, end: 20210903
  3. AMOXICILLIN\CLAVULANIC ACID [Suspect]
     Active Substance: AMOXICILLIN\CLAVULANIC ACID
     Indication: Vitamin supplementation
     Dosage: 1 DF, 3X/DAY
     Route: 042
     Dates: start: 20210827, end: 20210903
  4. ACETAMINOPHEN [Suspect]
     Active Substance: ACETAMINOPHEN
     Indication: Pain
     Dosage: 1 G, 3X/DAY
     Route: 042
     Dates: start: 20210903, end: 20210919
  5. FOLIC ACID [Suspect]
     Active Substance: FOLIC ACID
     Indication: Vitamin supplementation
     Dosage: 5 MG, 1X/DAY
     Route: 048
     Dates: start: 20210831, end: 20210927
  6. VALIUM [Suspect]
     Active Substance: DIAZEPAM
     Indication: Delirium tremens
     Dosage: 1 DF, 1X/DAY
     Route: 048
     Dates: start: 20210826, end: 20210901
  7. CEFTRIAXONE [Suspect]
     Active Substance: CEFTRIAXONE
     Indication: Urinary tract infection
     Dosage: 1 GRAM, QD (SOLUTION)
     Route: 042
     Dates: start: 20210902, end: 20210905
  8. KARDEGIC [Suspect]
     Active Substance: ASPIRIN DL-LYSINE
     Indication: Peripheral arterial occlusive disease
     Dosage: 75 MG, 1X/DAY
     Route: 042
     Dates: start: 20210831, end: 20210922
  9. NOREPINEPHRINE\NOREPINEPHRINE BITARTRATE [Suspect]
     Active Substance: NOREPINEPHRINE\NOREPINEPHRINE BITARTRATE
     Indication: Shock
     Dosage: 0.4 MILLIGRAM, Q1HR
     Route: 042
     Dates: start: 20210830, end: 20210916
  10. ESIDREX [Suspect]
     Active Substance: HYDROCHLOROTHIAZIDE
     Dosage: 12.5 MG, 1X/DAY
     Route: 048
     Dates: start: 20210827, end: 20210901
  11. CIPROFLOXACIN [Suspect]
     Active Substance: CIPROFLOXACIN
     Indication: Urinary tract infection
     Dosage: 400 MG, 2X/DAY
     Route: 065
     Dates: start: 20210902, end: 20210905
  12. ECONAZOLE [Suspect]
     Active Substance: ECONAZOLE
     Indication: Dermatophytosis
     Dosage: 2 DF, 1X/DAY (EMULSION)
     Route: 003
     Dates: start: 20210827, end: 20210906
  13. POTASSIUM CHLORIDE\POTASSIUM GLYCEROPHOSPHATE ANHYDROUS [Suspect]
     Active Substance: POTASSIUM CHLORIDE\POTASSIUM GLYCEROPHOSPHATE ANHYDROUS
     Indication: Hypokalaemia
     Dosage: 6 C.A.S /J
     Route: 048
     Dates: start: 20210902, end: 20210905
  14. CYANOCOBALAMIN\PYRIDOXINE HYDROCHLORIDE\THIAMINE [Suspect]
     Active Substance: CYANOCOBALAMIN\PYRIDOXINE HYDROCHLORIDE\THIAMINE
     Indication: Vitamin supplementation
     Dosage: 4DF 2/J
     Route: 048
     Dates: start: 20210827, end: 20210915

REACTIONS (2)
  - Acute generalised exanthematous pustulosis [Fatal]
  - Multiple organ dysfunction syndrome [Fatal]

NARRATIVE: CASE EVENT DATE: 20210101
